FAERS Safety Report 5360237-4 (Version None)
Quarter: 2007Q2

REPORT INFORMATION
  Report Type: 
  Country: None (occurrence: None)
  Receive Date: 20070618
  Receipt Date: 20070607
  Transmission Date: 20071010
  Serious: Yes (Other)
  Sender: FDA-Public Use
  Company Number: JP-ELI_LILLY_AND_COMPANY-JP200705007608

PATIENT
  Age: 41 Year
  Sex: Female
  Weight: 51 kg

DRUGS (11)
  1. ZYPREXA [Suspect]
     Indication: SCHIZOAFFECTIVE DISORDER
     Dosage: 10 MG, DAILY (1/D)
     Route: 048
     Dates: start: 20070407, end: 20070426
  2. DEPAKENE-R /JPN/ [Concomitant]
     Indication: SCHIZOAFFECTIVE DISORDER
     Dosage: 400 MG, DAILY (1/D)
     Route: 048
     Dates: start: 20070507, end: 20070513
  3. DEPAKENE-R /JPN/ [Concomitant]
     Dosage: 800 MG, DAILY (1/D)
     Route: 048
     Dates: start: 20070514, end: 20070524
  4. ZYPREXA [Suspect]
     Dosage: 20 MG, DAILY (1/D)
     Route: 048
     Dates: start: 20070427
  5. LIMAS [Concomitant]
     Dosage: 800 MG, DAILY (1/D)
     Route: 048
     Dates: end: 20070412
  6. LIMAS [Concomitant]
     Dosage: 600 MG, DAILY (1/D)
     Route: 048
     Dates: start: 20070413
  7. RISPERDAL [Concomitant]
     Dosage: 2 MG, DAILY (1/D)
     Route: 048
     Dates: end: 20070426
  8. AKINETON [Concomitant]
     Dosage: 2 MG, DAILY (1/D)
     Route: 048
     Dates: end: 20070430
  9. ROHYPNOL [Concomitant]
     Dosage: 2 MG, DAILY (1/D)
     Route: 048
     Dates: end: 20070513
  10. ROHYPNOL [Concomitant]
     Dosage: 1 MG, DAILY (1/D)
     Route: 048
     Dates: start: 20070514
  11. WYPAX [Concomitant]
     Dosage: 3 MG, DAILY (1/D)
     Route: 048

REACTIONS (1)
  - GRANULOCYTE COUNT DECREASED [None]
